FAERS Safety Report 6315267-2 (Version None)
Quarter: 2009Q3

REPORT INFORMATION
  Report Type: 
  Country: None (occurrence: None)
  Receive Date: 20090819
  Receipt Date: 20090817
  Transmission Date: 20100115
  Serious: Yes (Death)
  Sender: FDA-Public Use
  Company Number: PHEH2009US09435

PATIENT
  Sex: Female

DRUGS (3)
  1. FORADIL [Suspect]
  2. NASONEX [Suspect]
     Dosage: 50 UG, UNK
     Route: 045
  3. PROVENTIL-HFA [Suspect]
     Dosage: 105 UG, UNK

REACTIONS (1)
  - DEATH [None]
